FAERS Safety Report 24637152 (Version 1)
Quarter: 2024Q4

REPORT INFORMATION
  Report Type: Spontaneous
  Country: EG (occurrence: EG)
  Receive Date: 20241119
  Receipt Date: 20241119
  Transmission Date: 20250115
  Serious: Yes (Hospitalization, Other)
  Sender: HIKMA
  Company Number: EG-HIKMA PHARMACEUTICALS USA INC.-EG-H14001-24-10600

PATIENT

DRUGS (4)
  1. CARBOPLATIN [Suspect]
     Active Substance: CARBOPLATIN
     Indication: Breast cancer
     Dosage: 450 MG DOSE, EVERY 21 DAYS
     Route: 041
     Dates: start: 20240919
  2. PACLITAXEL [Suspect]
     Active Substance: PACLITAXEL
     Indication: Breast cancer
     Dosage: 280 MG DOSE, EVERY 21 DAYS
     Route: 041
     Dates: start: 20240919
  3. DEXAMETHASONE [Concomitant]
     Active Substance: DEXAMETHASONE
     Indication: Chemotherapy side effect prophylaxis
     Dosage: 8 MG
     Route: 041
  4. PIRAFENE [Concomitant]
     Indication: Chemotherapy side effect prophylaxis
     Dosage: 5 MG
     Route: 041

REACTIONS (2)
  - Normochromic normocytic anaemia [Recovered/Resolved]
  - Abdominal wall oedema [Recovered/Resolved]

NARRATIVE: CASE EVENT DATE: 20241009
